FAERS Safety Report 24826150 (Version 1)
Quarter: 2025Q1

REPORT INFORMATION
  Report Type: Spontaneous
  Country: DE (occurrence: DE)
  Receive Date: 20250109
  Receipt Date: 20250109
  Transmission Date: 20250409
  Serious: Yes (Other)
  Sender: SANOFI AVENTIS
  Company Number: DE-PEI-202400020724

PATIENT
  Age: 84 Year
  Sex: Female

DRUGS (1)
  1. DUPIXENT [Suspect]
     Active Substance: DUPILUMAB
     Indication: Dermatitis atopic
     Dates: start: 20240806

REACTIONS (8)
  - Blood pressure decreased [Unknown]
  - Respiratory distress [Unknown]
  - Malaise [Unknown]
  - Hypoaesthesia [Unknown]
  - Somnolence [Unknown]
  - Lymphadenopathy [Unknown]
  - Dizziness [Unknown]
  - Eye swelling [Unknown]

NARRATIVE: CASE EVENT DATE: 20240806
